FAERS Safety Report 9370253 (Version 1)
Quarter: 2013Q2

REPORT INFORMATION
  Report Type: Spontaneous
  Country: US (occurrence: US)
  Receive Date: 20130626
  Receipt Date: 20130626
  Transmission Date: 20140414
  Serious: Yes (Hospitalization, Other)
  Sender: FDA-Public Use
  Company Number: US-UCBSA-089502

PATIENT
  Sex: Male

DRUGS (2)
  1. VIMPAT [Suspect]
     Dosage: UNKNOWN
  2. VIMPAT [Suspect]
     Indication: STATUS EPILEPTICUS
     Dosage: DOSE UNSPECIFIED
     Route: 042
     Dates: start: 20130611

REACTIONS (2)
  - Status epilepticus [Unknown]
  - Hallucination [Unknown]
